FAERS Safety Report 12398795 (Version 5)
Quarter: 2016Q3

REPORT INFORMATION
  Report Type: Spontaneous
  Country: US (occurrence: US)
  Receive Date: 20160524
  Receipt Date: 20160713
  Transmission Date: 20161109
  Serious: No
  Sender: FDA-Public Use
  Company Number: US-PFIZER INC-2016240307

PATIENT
  Age: 55 Year
  Sex: Female
  Weight: 95.25 kg

DRUGS (2)
  1. LYRICA [Suspect]
     Active Substance: PREGABALIN
     Indication: FIBROMYALGIA
     Dosage: 150 MG, UNK (ONE CAPSULE BY MOUTH IN THE MORNING, ONE AT NOON, ONE 1 AT 5 PM AND TWO AT BEDTIME)
     Route: 048
  2. OXYCODONE [Concomitant]
     Active Substance: OXYCODONE
     Dosage: 15MG TABLET, ONE TABLET EVERY 6 HOURS AS NEEDED
     Route: 048

REACTIONS (8)
  - Burning sensation [Not Recovered/Not Resolved]
  - Condition aggravated [Not Recovered/Not Resolved]
  - Chronic obstructive pulmonary disease [Unknown]
  - Pain in extremity [Not Recovered/Not Resolved]
  - Pain [Unknown]
  - Overdose [Unknown]
  - Hypoacusis [Unknown]
  - Paraesthesia [Unknown]
